FAERS Safety Report 6195866-1 (Version None)
Quarter: 2009Q2

REPORT INFORMATION
  Report Type: 
  Country: None (occurrence: None)
  Receive Date: 20090520
  Receipt Date: 20090512
  Transmission Date: 20091009
  Serious: Yes (Other)
  Sender: FDA-Public Use
  Company Number: JP-ROCHE-632786

PATIENT
  Age: 56 Year
  Sex: Female

DRUGS (9)
  1. XELODA [Suspect]
     Indication: BREAST CANCER
     Dosage: FORM REPORTED: INFUSION, 2 WEEK TREATMENT AND 1 WEEK REST.
     Route: 065
  2. XELODA [Suspect]
     Dosage: 12 HR INFUSION
     Route: 065
  3. NAVELBINE [Suspect]
     Indication: BREAST CANCER
     Dosage: 9 COURSES WITH 2 WK TREATMENT AND 1 WK REST (SHORT INFUSION)
     Route: 065
  4. NAVELBINE [Suspect]
     Dosage: 12 HOUR INFUSION
     Route: 065
  5. TAXOTEL [Suspect]
     Indication: BREAST CANCER
     Dosage: 28 COURSES
     Route: 065
  6. TAXOL [Suspect]
     Indication: BREAST CANCER
     Dosage: 9 CYCLES WITH 3 WK TREATMENT AND 1 WK REST
     Route: 065
  7. CYCLOPHOSPHAMIDE [Suspect]
     Indication: BREAST CANCER
     Dosage: NINE CYCLES OF FEC75 (FLUOROURACIL/EPIRUPICIN/CYCLOPHOSPHAMIDE)
     Route: 065
  8. EPIRUBICIN [Suspect]
  9. FLUOROURACIL [Suspect]

REACTIONS (1)
  - MALIGNANT NEOPLASM PROGRESSION [None]
